FAERS Safety Report 6453788-2 (Version None)
Quarter: 2009Q4

REPORT INFORMATION
  Report Type: 
  Country: None (occurrence: None)
  Receive Date: 20091123
  Receipt Date: 20091123
  Transmission Date: 20100525
  Serious: Yes (Other)
  Sender: FDA-Public Use
  Company Number: None

PATIENT
  Age: 31 Year
  Sex: Male
  Weight: 92.9874 kg

DRUGS (1)
  1. CREST PRO HEALTH ORAL RINSE PROCTER GAMBLE [Suspect]
     Indication: DENTAL DISORDER PROPHYLAXIS
     Dosage: 20ML TWICE PER DAY PO
     Route: 048
     Dates: start: 20090701, end: 20091101

REACTIONS (1)
  - TOOTH DISCOLOURATION [None]
